FAERS Safety Report 13691767 (Version 1)
Quarter: 2017Q2

REPORT INFORMATION
  Report Type: Spontaneous
  Country: FR (occurrence: FR)
  Receive Date: 20170626
  Receipt Date: 20170626
  Transmission Date: 20170830
  Serious: Yes (Other)
  Sender: FDA-Public Use
  Company Number: FR-ALLERGAN-1726321US

PATIENT
  Age: 57 Year
  Sex: Female

DRUGS (2)
  1. PYLERA [Suspect]
     Active Substance: BISMUTH SUBCITRATE POTASSIUM\METRONIDAZOLE\TETRACYCLINE HYDROCHLORIDE
     Indication: HELICOBACTER INFECTION
     Dosage: 4 DF, TID
     Route: 048
     Dates: start: 20170430, end: 20170508
  2. OMEPRAZOLE. [Concomitant]
     Active Substance: OMEPRAZOLE
     Indication: HELICOBACTER INFECTION
     Dosage: UNK

REACTIONS (5)
  - Balance disorder [Unknown]
  - Inappropriate schedule of drug administration [Unknown]
  - Depression [Unknown]
  - Fatigue [Unknown]
  - Vertigo [Unknown]

NARRATIVE: CASE EVENT DATE: 2017
